FAERS Safety Report 7815890-X (Version None)
Quarter: 2011Q4

REPORT INFORMATION
  Report Type: 
  Country: None (occurrence: None)
  Receive Date: 20111014
  Receipt Date: 20111007
  Transmission Date: 20120403
  Serious: Yes (Hospitalization)
  Sender: FDA-Public Use
  Company Number: US-SANOFI-AVENTIS-2011SA053889

PATIENT
  Age: 55 Year
  Sex: Male

DRUGS (4)
  1. MULTI-VITAMINS [Concomitant]
  2. SOLOSTAR [Suspect]
     Indication: TYPE 2 DIABETES MELLITUS
     Dates: start: 20070101
  3. LANTUS [Suspect]
     Indication: TYPE 2 DIABETES MELLITUS
     Dosage: EVERY MORNING DOSE:45 UNIT(S)
     Route: 058
     Dates: start: 20070101
  4. CRESTOR [Concomitant]

REACTIONS (4)
  - HEART RATE INCREASED [None]
  - MALAISE [None]
  - BLOOD GLUCOSE INCREASED [None]
  - CARDIAC FAILURE CONGESTIVE [None]
